FAERS Safety Report 25861281 (Version 3)
Quarter: 2025Q4

REPORT INFORMATION
  Report Type: Spontaneous
  Country: EU (occurrence: EU)
  Receive Date: 20250929
  Receipt Date: 20251027
  Transmission Date: 20260118
  Serious: Yes (Other)
  Sender: MERCK SHARP & DOHME LLC
  Company Number: None

PATIENT
  Age: 42 Year
  Sex: Female
  Weight: 74 kg

DRUGS (7)
  1. KEYTRUDA [Suspect]
     Active Substance: PEMBROLIZUMAB
     Indication: Breast cancer stage II
     Dosage: 200MG IN 100ML OF 0.9% NACL EVERY 3 WEEKS
     Route: 042
     Dates: start: 20250606
  2. ONDANSETRON [Concomitant]
     Active Substance: ONDANSETRON
     Indication: Prophylaxis of nausea and vomiting
     Dosage: 8MG IN 100ML OF 0.9% NACL
     Route: 042
  3. PACLITAXEL [Concomitant]
     Active Substance: PACLITAXEL
     Indication: Breast cancer stage II
     Dosage: 80MG/MQ I N 250ML DI NACL 0,9% OGNI SETTIMANA
     Route: 042
     Dates: start: 20250606
  4. TRIMETON [Concomitant]
     Active Substance: CHLORPHENIRAMINE MALEATE
     Indication: Chemotherapy side effect prophylaxis
     Dosage: 10MG IN 100ML DI NACL 0,9%
     Route: 042
  5. CARBOPLATIN [Concomitant]
     Active Substance: CARBOPLATIN
     Indication: Breast cancer stage II
     Dosage: 15MG/AUC IN 250ML DI GLUCOSATA 5% OGNI SETTIMANA
     Route: 042
     Dates: start: 20250606
  6. DEXAMETHASONE [Concomitant]
     Active Substance: DEXAMETHASONE
     Indication: Chemotherapy side effect prophylaxis
     Dosage: 20MG
     Route: 042
  7. HYDROCORTISONE SODIUM SUCCINATE [Concomitant]
     Active Substance: HYDROCORTISONE SODIUM SUCCINATE
     Indication: Chemotherapy side effect prophylaxis
     Dosage: 200MG IN 100ML DI NACL 0,9%
     Route: 042

REACTIONS (2)
  - Neutropenia [Recovered/Resolved]
  - Rash pruritic [Recovered/Resolved]

NARRATIVE: CASE EVENT DATE: 20250704
